FAERS Safety Report 23335319 (Version 5)
Quarter: 2024Q4

REPORT INFORMATION
  Report Type: Spontaneous
  Country: JP (occurrence: JP)
  Receive Date: 20231225
  Receipt Date: 20241004
  Transmission Date: 20250114
  Serious: Yes (Hospitalization, Other)
  Sender: BRISTOL MYERS SQUIBB
  Company Number: JP-BRISTOL-MYERS SQUIBB COMPANY-2023-182929

PATIENT
  Age: 64 Year
  Sex: Male

DRUGS (2)
  1. YERVOY [Suspect]
     Active Substance: IPILIMUMAB
     Indication: Oesophageal carcinoma recurrent
     Route: 041
     Dates: start: 202311
  2. OPDIVO [Suspect]
     Active Substance: NIVOLUMAB
     Indication: Oesophageal carcinoma recurrent
     Route: 041
     Dates: start: 202311

REACTIONS (6)
  - Stomatitis [Recovering/Resolving]
  - Cheilitis [Recovering/Resolving]
  - Immune-mediated dermatitis [Recovering/Resolving]
  - Conjunctivitis [Recovering/Resolving]
  - Condition aggravated [Unknown]
  - Mucocutaneous disorder [Unknown]

NARRATIVE: CASE EVENT DATE: 20231201
